FAERS Safety Report 7919564-6 (Version None)
Quarter: 2011Q4

REPORT INFORMATION
  Report Type: 
  Country: None (occurrence: None)
  Receive Date: 20111117
  Receipt Date: 20111111
  Transmission Date: 20120403
  Serious: Yes (Death)
  Sender: FDA-Public Use
  Company Number: US-CELGENEUS-163-20785-11082492

PATIENT
  Sex: Female

DRUGS (5)
  1. PEPCID [Concomitant]
     Route: 065
  2. THALOMID [Suspect]
     Indication: MYELOFIBROSIS
     Dosage: 100 MILLIGRAM
     Route: 048
     Dates: start: 20110412, end: 20110809
  3. PREDNISONE TAB [Concomitant]
     Dosage: 20 MILLIGRAM
     Route: 065
  4. COUMADIN [Concomitant]
     Dosage: 2.5 MILLIGRAM
     Route: 065
  5. ASPIRIN [Concomitant]
     Dosage: 81 MILLIGRAM
     Route: 065

REACTIONS (2)
  - HEPATIC FAILURE [None]
  - MYELOFIBROSIS [None]
